FAERS Safety Report 12873531 (Version 3)
Quarter: 2018Q3

REPORT INFORMATION
  Report Type: Report from Study
  Country: FR (occurrence: FR)
  Receive Date: 20161021
  Receipt Date: 20180706
  Transmission Date: 20181010
  Serious: Yes (Death, Hospitalization)
  Sender: FDA-Public Use
  Company Number: FR-ASTRAZENECA-2016SF09379

PATIENT
  Age: 59 Year
  Sex: Female

DRUGS (16)
  1. SKENAN [Concomitant]
     Active Substance: MORPHINE SULFATE
     Indication: ABDOMINAL PAIN
     Route: 048
     Dates: start: 20161008, end: 20161023
  2. MEDI4736 [Suspect]
     Active Substance: DURVALUMAB
     Indication: SMALL CELL LUNG CANCER
     Route: 042
     Dates: start: 20160913, end: 20160913
  3. PRIMPERAN [Concomitant]
     Active Substance: METOCLOPRAMIDE HYDROCHLORIDE
     Indication: PROPHYLAXIS OF NAUSEA AND VOMITING
     Dosage: 1.0DF AS REQUIRED
     Route: 048
     Dates: start: 20160719, end: 20161012
  4. SMECTA [Concomitant]
     Active Substance: MONTMORILLONITE
     Indication: DIARRHOEA
     Dosage: 1 SCAHET THREE TIMES A WEEK
     Route: 048
     Dates: start: 20160809
  5. FILGRASTIM [Concomitant]
     Active Substance: FILGRASTIM
     Indication: PROPHYLAXIS
     Route: 042
     Dates: start: 20161009, end: 20161011
  6. SPASFON (PHLOROGLUCINOL\TRIMETHYLPHLOROGLUCINOL) [Concomitant]
     Active Substance: PHLOROGLUCINOL\1,3,5-TRIMETHOXYBENZENE
     Indication: IRRITABLE BOWEL SYNDROME
     Dosage: 1.0DF AS REQUIRED
     Route: 048
  7. PARACETAMOL [Concomitant]
     Active Substance: ACETAMINOPHEN
     Indication: ABDOMINAL PAIN
     Dosage: 1.0DF AS REQUIRED
     Route: 048
     Dates: end: 20161011
  8. OLAPARIB. [Suspect]
     Active Substance: OLAPARIB
     Indication: SMALL CELL LUNG CANCER
     Route: 048
     Dates: start: 20160719, end: 20160904
  9. OLAPARIB. [Suspect]
     Active Substance: OLAPARIB
     Indication: SMALL CELL LUNG CANCER
     Route: 048
     Dates: start: 20160920, end: 20161002
  10. VALDOXAN [Concomitant]
     Active Substance: AGOMELATINE
     Indication: ANXIETY
     Dosage: 1 DF
     Route: 048
     Dates: start: 20160802
  11. IMODIUM [Concomitant]
     Active Substance: LOPERAMIDE HYDROCHLORIDE
     Indication: DIARRHOEA
     Dosage: 1.0DF AS REQUIRED
     Route: 048
     Dates: start: 20160809
  12. DAFFALGAN CODEINE [Concomitant]
     Indication: ABDOMINAL PAIN
     Dosage: 30 MG MAXIMUM 6 TIMES A DAY
     Route: 048
     Dates: start: 201608, end: 20161008
  13. ACTISKENAN [Concomitant]
     Active Substance: MORPHINE SULFATE
     Indication: ABDOMINAL PAIN
     Route: 048
     Dates: start: 20161008, end: 20161023
  14. TOPOTECAN [Suspect]
     Active Substance: TOPOTECAN HYDROCHLORIDE
     Indication: DISEASE PROGRESSION
     Dosage: 1 CYCLE THIRD LINE CYTOTOXIC CHEMOTHERAPY
     Route: 042
     Dates: start: 20161006, end: 20161009
  15. MEDI4736 [Suspect]
     Active Substance: DURVALUMAB
     Indication: SMALL CELL LUNG CANCER
     Route: 042
     Dates: start: 20160816, end: 20160816
  16. DEBRIDAT [Concomitant]
     Active Substance: TRIMEBUTINE MALEATE
     Indication: IRRITABLE BOWEL SYNDROME
     Dosage: 1.0DF AS REQUIRED
     Route: 048
     Dates: end: 20161012

REACTIONS (1)
  - Pancytopenia [Fatal]

NARRATIVE: CASE EVENT DATE: 20161011
